FAERS Safety Report 24188974 (Version 1)
Quarter: 2024Q3

REPORT INFORMATION
  Report Type: Spontaneous
  Country: US (occurrence: US)
  Receive Date: 20240808
  Receipt Date: 20240808
  Transmission Date: 20241016
  Serious: No
  Sender: OTSUKA
  Company Number: US-OTSUKA-2024_011280

PATIENT
  Age: 52 Year
  Sex: Female
  Weight: 96.16 kg

DRUGS (3)
  1. ABILIFY MAINTENA [Suspect]
     Active Substance: ARIPIPRAZOLE
     Indication: Bipolar disorder
     Dosage: 40 MG, QM (TWO INJECTIONS, ONE IN THE LEFT ARM AND ONE IN THE BUTTOCKS)
     Route: 030
     Dates: start: 20240408
  2. LITHIUM [Concomitant]
     Active Substance: LITHIUM
     Indication: Bipolar disorder
     Dosage: 2 DF, QD (AT NIGHT)
     Route: 065
     Dates: start: 20240313
  3. COGENTIN [Concomitant]
     Active Substance: BENZTROPINE MESYLATE
     Indication: Product used for unknown indication
     Dosage: UNK UNK, QD
     Route: 065
     Dates: start: 20240415

REACTIONS (6)
  - Back disorder [Not Recovered/Not Resolved]
  - Injection site pain [Unknown]
  - Insomnia [Not Recovered/Not Resolved]
  - Tremor [Not Recovered/Not Resolved]
  - Weight decreased [Unknown]
  - Underdose [Unknown]

NARRATIVE: CASE EVENT DATE: 20240401
